FAERS Safety Report 4315583-X (Version None)
Quarter: 2004Q1

REPORT INFORMATION
  Report Type: 
  Country: None (occurrence: None)
  Receive Date: 20040311
  Receipt Date: 20040301
  Transmission Date: 20041129
  Serious: Yes (Other)
  Sender: FDA-Public Use
  Company Number: SE-BRISTOL-MYERS SQUIBB COMPANY-12523015

PATIENT
  Age: 67 Year
  Sex: Female

DRUGS (6)
  1. PRAVACHOL [Suspect]
     Indication: HYPERLIPIDAEMIA
     Route: 048
     Dates: start: 20030701, end: 20031001
  2. PLENDIL [Concomitant]
  3. SERETIDE [Concomitant]
  4. POLARAMINE [Concomitant]
  5. DISTALGESIC [Concomitant]
  6. FUROSEMIDE [Concomitant]

REACTIONS (2)
  - BLEEDING TIME PROLONGED [None]
  - OEDEMA PERIPHERAL [None]
